FAERS Safety Report 18710140 (Version 2)
Quarter: 2021Q1

REPORT INFORMATION
  Report Type: Report from Study
  Country: None (occurrence: ES)
  Receive Date: 20210106
  Receipt Date: 20210112
  Transmission Date: 20210419
  Serious: No
  Sender: FDA-Public Use
  Company Number: ES-ABBVIE-20K-144-3697437-00

PATIENT
  Sex: Female
  Weight: 66 kg

DRUGS (2)
  1. DUODOPA [Suspect]
     Active Substance: CARBIDOPA\LEVODOPA
  2. DUODOPA [Suspect]
     Active Substance: CARBIDOPA\LEVODOPA
     Indication: PARKINSON^S DISEASE
     Route: 050
     Dates: start: 20180426

REACTIONS (6)
  - Postural tremor [Unknown]
  - Mobility decreased [Unknown]
  - Freezing phenomenon [Not Recovered/Not Resolved]
  - Tremor [Unknown]
  - Muscular weakness [Unknown]
  - Dyskinesia [Unknown]

NARRATIVE: CASE EVENT DATE: 2020
